FAERS Safety Report 7720406-2 (Version None)
Quarter: 2011Q3

REPORT INFORMATION
  Report Type: 
  Country: None (occurrence: None)
  Receive Date: 20110830
  Receipt Date: 20110830
  Transmission Date: 20111222
  Serious: No
  Sender: FDA-Public Use
  Company Number: None

PATIENT
  Age: 41 Year
  Sex: Female

DRUGS (3)
  1. CEFAZOLIN [Suspect]
     Dates: start: 20100219, end: 20100219
  2. PROPOFOL [Suspect]
     Dates: start: 20100219, end: 20100219
  3. SEVOFLURANE [Suspect]
     Dates: start: 20100219, end: 20100219

REACTIONS (9)
  - LIVER DISORDER [None]
  - INFLAMMATION [None]
  - BIOPSY LIVER ABNORMAL [None]
  - HEPATIC FIBROSIS [None]
  - FATIGUE [None]
  - ASTHENIA [None]
  - ALANINE AMINOTRANSFERASE INCREASED [None]
  - ASPARTATE AMINOTRANSFERASE INCREASED [None]
  - BLOOD PRESSURE DECREASED [None]
